FAERS Safety Report 7273743-2 (Version None)
Quarter: 2011Q1

REPORT INFORMATION
  Report Type: 
  Country: None (occurrence: None)
  Receive Date: 20110203
  Receipt Date: 20110131
  Transmission Date: 20110831
  Serious: Yes (Other)
  Sender: FDA-Public Use
  Company Number: JP-PFIZER INC-2011010414

PATIENT
  Age: 54 Year
  Sex: Female
  Weight: 50 kg

DRUGS (7)
  1. CHAMPIX [Suspect]
     Dosage: 1 MG, 2X/DAY
     Route: 048
     Dates: start: 20110114
  2. CHAMPIX [Suspect]
     Dosage: UNK MG, 2X/DAY
     Route: 048
  3. CHAMPIX [Suspect]
     Dosage: 0.5 MG, 2X/DAY
     Route: 048
  4. MYSLEE [Concomitant]
  5. DOGMATYL [Concomitant]
  6. CHAMPIX [Suspect]
     Indication: SMOKING CESSATION THERAPY
     Dosage: 0.5 MG, 1X/DAY
     Route: 048
     Dates: start: 20110107
  7. RIZE [Concomitant]

REACTIONS (3)
  - FEELING COLD [None]
  - HYPOTHERMIA [None]
  - ABDOMINAL PAIN UPPER [None]
